FAERS Safety Report 17210591 (Version 2)
Quarter: 2020Q1

REPORT INFORMATION
  Report Type: Report from Study
  Country: US (occurrence: US)
  Receive Date: 20191227
  Receipt Date: 20200311
  Transmission Date: 20200409
  Serious: Yes (Other)
  Sender: FDA-Public Use
  Company Number: US-BRISTOL-MYERS SQUIBB COMPANY-BMS-2019-122895

PATIENT
  Age: 74 Year
  Sex: Male

DRUGS (1)
  1. NIVOLUMAB [Suspect]
     Active Substance: NIVOLUMAB
     Indication: SMALL CELL LUNG CANCER
     Route: 042

REACTIONS (10)
  - Adrenal gland cancer [Unknown]
  - Muscular weakness [Unknown]
  - Diarrhoea [Recovering/Resolving]
  - Arthralgia [Unknown]
  - Eye disorder [Unknown]
  - Rash [Recovering/Resolving]
  - Dyspnoea [Recovering/Resolving]
  - Dry skin [Recovering/Resolving]
  - Borderline glaucoma [Unknown]
  - Fatigue [Unknown]

NARRATIVE: CASE EVENT DATE: 201906
